FAERS Safety Report 4527839-6 (Version None)
Quarter: 2004Q4

REPORT INFORMATION
  Report Type: 
  Country: None (occurrence: None)
  Receive Date: 20041123
  Receipt Date: 20040409
  Transmission Date: 20050328
  Serious: Yes (Death, Hospitalization)
  Sender: FDA-Public Use
  Company Number: ATO-04-0368

PATIENT
  Age: 62 Year
  Sex: Female
  Weight: 87 kg

DRUGS (5)
  1. TRISENOX [Suspect]
     Indication: METASTATIC MALIGNANT MELANOMA
     Dosage: (21 MG, QD X 5 DAYS LOAD), IVI; SEE IMAGE
     Route: 042
     Dates: start: 20040315, end: 20040318
  2. TRISENOX [Suspect]
     Indication: METASTATIC MALIGNANT MELANOMA
     Dosage: (21 MG, QD X 5 DAYS LOAD), IVI; SEE IMAGE
     Route: 042
     Dates: start: 20040322, end: 20040405
  3. ASCORBIC ACID [Suspect]
     Indication: METASTATIC MALIGNANT MELANOMA
     Dosage: (1000 MG, QD X 5 DAYS (LOAD)), IVI; SEE IMAGE
     Route: 042
     Dates: start: 20040315, end: 20040318
  4. ASCORBIC ACID [Suspect]
     Indication: METASTATIC MALIGNANT MELANOMA
     Dosage: (1000 MG, QD X 5 DAYS (LOAD)), IVI; SEE IMAGE
     Route: 042
     Dates: start: 20040322, end: 20040405
  5. TEMOZOLOMIDE [Suspect]
     Indication: METASTATIC MALIGNANT MELANOMA
     Dosage: (380 MG, QD X 5 DAYS
     Dates: start: 20040322, end: 20040326

REACTIONS (6)
  - ASCITES [None]
  - DEHYDRATION [None]
  - DISEASE PROGRESSION [None]
  - MALIGNANT NEOPLASM PROGRESSION [None]
  - RENAL FAILURE [None]
  - SOMNOLENCE [None]
